FAERS Safety Report 19257180 (Version 2)
Quarter: 2021Q2

REPORT INFORMATION
  Report Type: Spontaneous
  Country: JP (occurrence: JP)
  Receive Date: 20210513
  Receipt Date: 20210525
  Transmission Date: 20210717
  Serious: Yes (Death, Other)
  Sender: FDA-Public Use
  Company Number: JP-GILEAD-2021-0530327

PATIENT
  Age: 75 Year
  Sex: Female
  Weight: 73 kg

DRUGS (7)
  1. VEKLURY [Suspect]
     Active Substance: REMDESIVIR
     Indication: COVID-19
     Dosage: 200 MG, QD
     Route: 041
     Dates: start: 20210508, end: 20210508
  2. AVIGAN [Concomitant]
     Active Substance: FAVIPIRAVIR
     Dosage: UNK
     Dates: start: 20210503
  3. VEKLURY [Suspect]
     Active Substance: REMDESIVIR
     Dosage: 100 MG, QD
     Route: 041
     Dates: start: 20210509, end: 20210510
  4. PREDONINE [PREDNISOLONE ACETATE] [Concomitant]
     Active Substance: PREDNISOLONE ACETATE
     Indication: COVID-19
     Dosage: UNK
     Dates: start: 20210504
  5. PREDONINE [PREDNISOLONE ACETATE] [Concomitant]
     Active Substance: PREDNISOLONE ACETATE
     Dosage: 40 MG, QD
     Route: 041
     Dates: start: 20210510, end: 20210510
  6. SOLU?MEDROL [Concomitant]
     Active Substance: METHYLPREDNISOLONE SODIUM SUCCINATE
     Indication: COVID-19
     Dosage: 1000 MG, QD
     Route: 041
     Dates: start: 20210507, end: 20210509
  7. FOIPAN [Concomitant]
     Active Substance: CAMOSTAT MESYLATE
     Dosage: UNK
     Dates: start: 20210503

REACTIONS (2)
  - COVID-19 [Fatal]
  - Respiratory failure [Fatal]

NARRATIVE: CASE EVENT DATE: 20210511
